FAERS Safety Report 5168162-9 (Version None)
Quarter: 2006Q4

REPORT INFORMATION
  Report Type: 
  Country: None (occurrence: None)
  Receive Date: 20061208
  Receipt Date: 20061201
  Transmission Date: 20070319
  Serious: Yes (Hospitalization)
  Sender: FDA-Public Use
  Company Number: US-JNJFOC-20061201124

PATIENT
  Sex: Male

DRUGS (10)
  1. INFLIXIMAB [Suspect]
     Indication: RHEUMATOID ARTHRITIS
     Route: 042
  2. ASPIRIN [Concomitant]
  3. NIFEDIPINE [Concomitant]
  4. COZAAR [Concomitant]
  5. TRICOR [Concomitant]
  6. LORATADINE [Concomitant]
  7. FOLIC ACID [Concomitant]
  8. METHOTREXATE [Concomitant]
  9. FLONASE [Concomitant]
  10. ALBUTERAL [Concomitant]

REACTIONS (1)
  - PROSTATE CANCER [None]
